FAERS Safety Report 4464775-8 (Version None)
Quarter: 2004Q4

REPORT INFORMATION
  Report Type: 
  Country: None (occurrence: None)
  Receive Date: 20041004
  Receipt Date: 20040817
  Transmission Date: 20050328
  Serious: No
  Sender: FDA-Public Use
  Company Number: 380040

PATIENT
  Age: 78 Year
  Sex: Female

DRUGS (7)
  1. COREG [Suspect]
     Dosage: 6.25MG IN THE MORNING
     Route: 048
     Dates: start: 20040601
  2. VASOTEC [Concomitant]
  3. LASIX [Concomitant]
  4. SYNTHROID [Concomitant]
  5. ZAROXOLYN [Concomitant]
  6. SPIRONOLACTONE [Concomitant]
  7. COUMADIN [Concomitant]

REACTIONS (6)
  - ABNORMAL DREAMS [None]
  - ASTHENIA [None]
  - CHEST DISCOMFORT [None]
  - DIZZINESS [None]
  - INSOMNIA [None]
  - WEIGHT INCREASED [None]
